FAERS Safety Report 8577560 (Version 2)
Quarter: 2012Q4

REPORT INFORMATION
  Report Type: 
  Country: US (occurrence: US)
  Receive Date: 20120524
  Receipt Date: 20120830
  Transmission Date: 20130627
  Serious: Yes (Hospitalization)
  Sender: FDA-Public Use
  Company Number: US-BAYER-2012-050305

PATIENT
  Age: 30 Year
  Sex: Female
  Weight: 63.49 kg

DRUGS (5)
  1. GIANVI [Suspect]
     Indication: CONTRACEPTION
     Dosage: UNK
     Dates: start: 20110113
  2. AMOXICILLIN [Concomitant]
     Dosage: 500 mg, UNK
     Route: 048
     Dates: start: 20101203
  3. AMOXICILLIN [Concomitant]
     Dosage: 500 mg, UNK
     Route: 048
     Dates: start: 20110121
  4. IBUPROFEN [Concomitant]
     Dosage: 800 mg, UNK
     Route: 048
     Dates: start: 20111203
  5. BENZONATATE [Concomitant]
     Dosage: 200 mg, UNK
     Route: 048
     Dates: start: 20110121

REACTIONS (7)
  - Cholecystitis [None]
  - Injury [None]
  - Pain [None]
  - General physical health deterioration [None]
  - Anxiety [None]
  - Emotional distress [None]
  - Anhedonia [None]
